FAERS Safety Report 14142249 (Version 1)
Quarter: 2017Q4

REPORT INFORMATION
  Report Type: Spontaneous
  Country: FR (occurrence: FR)
  Receive Date: 20171030
  Receipt Date: 20171030
  Transmission Date: 20180321
  Serious: Yes (Death, Other)
  Sender: FDA-Public Use
  Company Number: FR-MYLANLABS-2017M1067395

PATIENT
  Age: 68 Year
  Sex: Male

DRUGS (6)
  1. TARGRETIN [Suspect]
     Active Substance: BEXAROTENE
     Indication: MYCOSIS FUNGOIDES
     Dosage: 300 MG/M2, DOSE REDUCED BY HALF
     Route: 065
  2. PREDNISOLONE. [Suspect]
     Active Substance: PREDNISOLONE
     Indication: IMMUNOSUPPRESSANT DRUG THERAPY
     Route: 065
  3. TACROLIMUS. [Suspect]
     Active Substance: TACROLIMUS
     Indication: IMMUNOSUPPRESSANT DRUG THERAPY
     Route: 065
  4. TARGRETIN [Suspect]
     Active Substance: BEXAROTENE
     Dosage: 150 MG/M2
     Route: 065
  5. GEMCITABINE [Suspect]
     Active Substance: GEMCITABINE\GEMCITABINE HYDROCHLORIDE
     Indication: MYCOSIS FUNGOIDES
     Dosage: 1000 MG/M2 AT THE RATE OF ONE INFUSION PER WEEK, THREE OUT OF FOUR WEEKS
     Route: 065
  6. MYCOPHENOLATE MOFETIL. [Suspect]
     Active Substance: MYCOPHENOLATE MOFETIL
     Indication: IMMUNOSUPPRESSANT DRUG THERAPY
     Route: 065

REACTIONS (5)
  - Hypertriglyceridaemia [Unknown]
  - Weight decreased [Unknown]
  - Thyroid stimulating hormone deficiency [Unknown]
  - Staphylococcal bacteraemia [Fatal]
  - Mycosis fungoides [Recovering/Resolving]
